FAERS Safety Report 21063951 (Version 1)
Quarter: 2022Q3

REPORT INFORMATION
  Report Type: Spontaneous
  Country: MY (occurrence: MY)
  Receive Date: 20220711
  Receipt Date: 20220711
  Transmission Date: 20221026
  Serious: Yes (Other)
  Sender: FDA-Public Use
  Company Number: ALC2022MY003165

PATIENT
  Age: 5 Year
  Sex: Male

DRUGS (1)
  1. ATROPINE [Suspect]
     Active Substance: ATROPINE
     Indication: Ophthalmological examination
     Dosage: 1 GTT
     Route: 047

REACTIONS (1)
  - Seizure [Unknown]
